FAERS Safety Report 4578511-8 (Version None)
Quarter: 2005Q1

REPORT INFORMATION
  Report Type: 
  Country: None (occurrence: None)
  Receive Date: 20050207
  Receipt Date: 20050207
  Transmission Date: 20050727
  Serious: Yes (Hospitalization, Disabling)
  Sender: FDA-Public Use
  Company Number: None

PATIENT
  Age: 8 Year
  Sex: Male
  Weight: 45.3597 kg

DRUGS (7)
  1. METOCLOPRAMIDE [Suspect]
     Indication: GASTROOESOPHAGEAL REFLUX DISEASE
     Dosage: 3 TIMES A DAY   ORAL
     Route: 048
     Dates: start: 20020315, end: 20030128
  2. METOCLOPRAMIDE [Suspect]
     Indication: GASTROOESOPHAGEAL REFLUX DISEASE
     Dosage: 3 TIMES A DAY   ORAL
     Route: 048
     Dates: start: 20030129, end: 20030701
  3. REGLAN [Concomitant]
  4. ZANTAC [Concomitant]
  5. ADVAIR DISKUS 100/50 [Concomitant]
  6. ALBUTEROL [Concomitant]
  7. SINGULAIR [Concomitant]

REACTIONS (9)
  - CATHETER RELATED COMPLICATION [None]
  - CONSTIPATION [None]
  - CONTRAINDICATION TO MEDICAL TREATMENT [None]
  - CRYING [None]
  - FAECALOMA [None]
  - GASTRIC DISORDER [None]
  - INTESTINAL FUNCTIONAL DISORDER [None]
  - PAINFUL DEFAECATION [None]
  - VOMITING [None]
